FAERS Safety Report 4900333-6 (Version None)
Quarter: 2006Q1

REPORT INFORMATION
  Report Type: 
  Country: None (occurrence: None)
  Receive Date: 20060203
  Receipt Date: 20051129
  Transmission Date: 20060701
  Serious: Yes (Life-Threatening, Hospitalization)
  Sender: FDA-Public Use
  Company Number: FR-GLAXOSMITHKLINE-B0402583A

PATIENT
  Age: 75 Year
  Sex: Male

DRUGS (9)
  1. AUGMENTIN '125' [Suspect]
     Dosage: 1G SINGLE DOSE
     Route: 048
     Dates: start: 20051029, end: 20051029
  2. CLAFORAN [Suspect]
     Dosage: 3G PER DAY
     Route: 048
     Dates: start: 20051030
  3. CIFLOX [Suspect]
     Dosage: 400MG TWICE PER DAY
     Route: 048
     Dates: start: 20051030
  4. SOLUPRED [Concomitant]
     Dosage: 20MG PER DAY
     Route: 048
     Dates: start: 20051028
  5. ACETAMINOPHEN [Concomitant]
     Dosage: 1G PER DAY
     Route: 048
     Dates: start: 20051028
  6. PERFALGAN [Concomitant]
     Dosage: 1G THREE TIMES PER DAY
     Route: 065
     Dates: start: 20051030
  7. KARDEGIC [Concomitant]
     Dosage: 160MG PER DAY
     Route: 048
  8. TAHOR [Concomitant]
     Dosage: 20MG UNKNOWN
     Route: 048
  9. COLCHIMAX [Concomitant]
     Dosage: 1MG PER DAY
     Route: 065

REACTIONS (26)
  - ABDOMINAL PAIN [None]
  - BLOOD PRESSURE FLUCTUATION [None]
  - CARDIAC FAILURE [None]
  - CHOLECYSTITIS ACUTE [None]
  - CONSTIPATION [None]
  - DIARRHOEA [None]
  - DISSEMINATED INTRAVASCULAR COAGULATION [None]
  - DYSPNOEA EXACERBATED [None]
  - EOSINOPHILIA [None]
  - ERYTHEMA MULTIFORME [None]
  - EYELID OEDEMA [None]
  - GASTRITIS [None]
  - IMPETIGO [None]
  - INFLAMMATION [None]
  - LOCALISED OEDEMA [None]
  - LYMPHADENOPATHY [None]
  - MALNUTRITION [None]
  - NAUSEA [None]
  - OESOPHAGEAL CANDIDIASIS [None]
  - POLLAKIURIA [None]
  - PYREXIA [None]
  - TRANSAMINASES INCREASED [None]
  - URINARY TRACT INFECTION [None]
  - VASODILATATION [None]
  - VOMITING [None]
  - WEIGHT DECREASED [None]
